FAERS Safety Report 9281713 (Version 2)
Quarter: 2013Q3

REPORT INFORMATION
  Report Type: Spontaneous
  Country: US (occurrence: US)
  Receive Date: 20130510
  Receipt Date: 20130803
  Transmission Date: 20140515
  Serious: Yes (Hospitalization)
  Sender: FDA-Public Use
  Company Number: US-B.I. PHARMACEUTICALS,INC./RIDGEFIELD-2013-BI-12878BP

PATIENT
  Age: 85 Year
  Sex: Female
  Weight: 102.06 kg

DRUGS (9)
  1. PRADAXA [Suspect]
     Indication: ANTICOAGULANT THERAPY
     Dosage: 300 MG
     Route: 048
     Dates: start: 20111202, end: 20120310
  2. PRADAXA [Suspect]
     Indication: ATRIAL FIBRILLATION
  3. LISINOPRIL [Concomitant]
     Dosage: 15 MG
  4. SINGULAIR [Concomitant]
     Dosage: 10 MG
  5. CADUET [Concomitant]
     Dosage: 5 MG
  6. VITAMIN D [Concomitant]
     Dosage: 5000 U
  7. MOBIC [Concomitant]
     Dosage: 15 MG
  8. ASPIRIN [Concomitant]
     Dosage: 81 MG
  9. POTASSIUM [Concomitant]
     Indication: SUPPLEMENTATION THERAPY

REACTIONS (4)
  - Gastrointestinal haemorrhage [Unknown]
  - Haemorrhagic anaemia [Unknown]
  - Coagulopathy [Unknown]
  - Visual impairment [Unknown]
